FAERS Safety Report 18113964 (Version 1)
Quarter: 2020Q3

REPORT INFORMATION
  Report Type: Spontaneous
  Country: DE (occurrence: DE)
  Receive Date: 20200805
  Receipt Date: 20200805
  Transmission Date: 20201103
  Serious: Yes (Other)
  Sender: FDA-Public Use
  Company Number: DE-SUN PHARMACEUTICAL INDUSTRIES LTD-2020R1-255187

PATIENT
  Age: 57 Year
  Sex: Female

DRUGS (1)
  1. GALANTAMINE. [Suspect]
     Active Substance: GALANTAMINE
     Indication: DEMENTIA ALZHEIMER^S TYPE
     Dosage: 8 MILLIGRAM, DAILY
     Route: 065

REACTIONS (4)
  - Nausea [Unknown]
  - Agnosia [Unknown]
  - Disorientation [Not Recovered/Not Resolved]
  - Condition aggravated [Unknown]
